FAERS Safety Report 9982771 (Version 1)
Quarter: 2014Q1

REPORT INFORMATION
  Report Type: Report from Study
  Country: US (occurrence: US)
  Receive Date: 20140307
  Receipt Date: 20140307
  Transmission Date: 20141002
  Serious: No
  Sender: FDA-Public Use
  Company Number: US-ABBVIE-13P-163-1176176-00

PATIENT
  Age: 39 Year
  Sex: Female
  Weight: 86.26 kg

DRUGS (18)
  1. HUMIRA [Suspect]
     Indication: COLITIS ULCERATIVE
     Dates: start: 20131202, end: 20131202
  2. HUMIRA [Suspect]
  3. CARVIDOL [Concomitant]
     Indication: MITRAL VALVE PROLAPSE
  4. CARVIDOL [Concomitant]
     Indication: CARDIAC FAILURE CONGESTIVE
  5. LOSARTAN [Concomitant]
     Indication: MITRAL VALVE PROLAPSE
  6. NEXIUM [Concomitant]
     Indication: GASTROOESOPHAGEAL REFLUX DISEASE
  7. LAMICTAL [Concomitant]
     Indication: CONVULSION
  8. LAMICTAL [Concomitant]
     Indication: BIPOLAR DISORDER
  9. CELEBREX [Concomitant]
     Indication: BACK INJURY
  10. LASIX [Concomitant]
     Indication: CARDIAC FAILURE CONGESTIVE
  11. SOMA [Concomitant]
     Indication: MUSCLE SPASMS
  12. NORCO [Concomitant]
     Indication: BACK INJURY
  13. ADDERALL [Concomitant]
     Indication: ATTENTION DEFICIT/HYPERACTIVITY DISORDER
  14. VALIUM [Concomitant]
     Indication: MUSCLE SPASMS
  15. VALIUM [Concomitant]
     Indication: ANXIETY
  16. MORPHINE [Concomitant]
     Indication: SURGERY
  17. ROBAXIN [Concomitant]
     Indication: BACK INJURY
  18. SULFASALAZINE [Concomitant]
     Indication: COLITIS ULCERATIVE

REACTIONS (3)
  - Injection site bruising [Not Recovered/Not Resolved]
  - Rash macular [Not Recovered/Not Resolved]
  - Injection site pain [Recovered/Resolved]
